FAERS Safety Report 22364544 (Version 1)
Quarter: 2023Q2

REPORT INFORMATION
  Report Type: Spontaneous
  Country: US (occurrence: US)
  Receive Date: 20230525
  Receipt Date: 20230525
  Transmission Date: 20230722
  Serious: Yes (Other)
  Sender: FDA-Public Use
  Company Number: US-TAKEDA-2023TUS050284

PATIENT

DRUGS (1)
  1. MOTEGRITY [Suspect]
     Active Substance: PRUCALOPRIDE SUCCINATE
     Indication: Product used for unknown indication
     Dosage: 2 MILLIGRAM
     Route: 065

REACTIONS (4)
  - Large intestinal obstruction [Unknown]
  - Muscle spasms [Unknown]
  - Constipation [Unknown]
  - Abdominal distension [Unknown]
